FAERS Safety Report 12865959 (Version 1)
Quarter: 2016Q4

REPORT INFORMATION
  Report Type: Spontaneous
  Country: US (occurrence: US)
  Receive Date: 20161019
  Receipt Date: 20161019
  Transmission Date: 20170207
  Serious: Yes (Hospitalization)
  Sender: FDA-Public Use
  Company Number: None

PATIENT
  Age: 55 Year
  Sex: Female

DRUGS (1)
  1. TRACLEER [Suspect]
     Active Substance: BOSENTAN
     Indication: CARDIAC DISORDER
     Route: 048
     Dates: start: 20160825, end: 20161018

REACTIONS (2)
  - Gangrene [None]
  - Leg amputation [None]

NARRATIVE: CASE EVENT DATE: 20161011
